FAERS Safety Report 4836819-2 (Version None)
Quarter: 2005Q4

REPORT INFORMATION
  Report Type: 
  Country: None (occurrence: None)
  Receive Date: 20051123
  Receipt Date: 20051004
  Transmission Date: 20060501
  Serious: Yes (Death, Hospitalization, Other)
  Sender: FDA-Public Use
  Company Number: US-MERCK-0510USA02276

PATIENT
  Age: 81 Year
  Sex: Female
  Weight: 72 kg

DRUGS (18)
  1. VIOXX [Suspect]
     Indication: ARTHRITIS
     Route: 048
     Dates: start: 19990101, end: 20040101
  2. AVAPRO [Concomitant]
     Route: 065
  3. POTASSIUM CHLORIDE [Concomitant]
     Route: 065
  4. ALPRAZOLAM [Concomitant]
     Route: 065
  5. PRILOSEC [Concomitant]
     Route: 065
  6. MECLIZINE [Concomitant]
     Route: 065
  7. HYDROCHLOROTHIAZIDE [Concomitant]
     Route: 065
  8. FUROSEMIDE [Concomitant]
     Route: 065
  9. GAVISCON ANTACID TABLETS [Concomitant]
     Route: 065
  10. RESTORIL [Concomitant]
     Route: 065
  11. PLAVIX [Concomitant]
     Route: 065
  12. IMDUR [Concomitant]
     Route: 065
  13. REGLAN [Concomitant]
     Route: 065
  14. TYLENOL [Concomitant]
     Route: 065
  15. ASPIRIN [Concomitant]
     Route: 065
  16. VERAPAMIL HYDROCHLORIDE [Concomitant]
     Route: 065
  17. TRAMADOL HYDROCHLORIDE [Concomitant]
     Route: 065
  18. METHOCARBAMOL [Concomitant]
     Route: 065

REACTIONS (22)
  - ANAEMIA [None]
  - ARTERIOSCLEROSIS [None]
  - BRONCHITIS ACUTE [None]
  - CARDIAC FAILURE CONGESTIVE [None]
  - CARDIOMEGALY [None]
  - CEREBROVASCULAR ACCIDENT [None]
  - CHEST PAIN [None]
  - DEATH [None]
  - DEEP VEIN THROMBOSIS [None]
  - GASTROOESOPHAGEAL REFLUX DISEASE [None]
  - HYPERTENSION [None]
  - HYPERTENSIVE CRISIS [None]
  - INFLUENZA [None]
  - INSOMNIA [None]
  - MENTAL STATUS CHANGES [None]
  - MYOCARDIAL INFARCTION [None]
  - OCCULT BLOOD POSITIVE [None]
  - PANCYTOPENIA [None]
  - PERIPHERAL VASCULAR DISORDER [None]
  - PNEUMONIA [None]
  - RENAL FAILURE [None]
  - TRANSIENT ISCHAEMIC ATTACK [None]
